FAERS Safety Report 4828921-6 (Version None)
Quarter: 2005Q4

REPORT INFORMATION
  Report Type: 
  Country: None (occurrence: None)
  Receive Date: 20051014
  Receipt Date: 20050711
  Transmission Date: 20060501
  Serious: No
  Sender: FDA-Public Use
  Company Number: 2005SP001849

PATIENT
  Age: 74 Year
  Sex: Male
  Weight: 83.4619 kg

DRUGS (7)
  1. LUNESTA [Suspect]
     Indication: INSOMNIA
     Dosage: 1 MG; HS; ORAL; 2 MG; HS; ORAL; 3 MG; HS; ORAL
     Route: 048
     Dates: start: 20050701, end: 20050701
  2. LUNESTA [Suspect]
     Indication: INSOMNIA
     Dosage: 1 MG; HS; ORAL; 2 MG; HS; ORAL; 3 MG; HS; ORAL
     Route: 048
     Dates: start: 20050708, end: 20050701
  3. LUNESTA [Suspect]
     Indication: INSOMNIA
     Dosage: 1 MG; HS; ORAL; 2 MG; HS; ORAL; 3 MG; HS; ORAL
     Route: 048
     Dates: start: 20050724
  4. VALIUM [Concomitant]
  5. DESLORATADINE [Concomitant]
  6. ALLEGRA [Concomitant]
  7. CAPTOPRIL [Concomitant]

REACTIONS (3)
  - DRUG INEFFECTIVE [None]
  - DYSGEUSIA [None]
  - MIDDLE INSOMNIA [None]
